FAERS Safety Report 6600275-4 (Version None)
Quarter: 2010Q1

REPORT INFORMATION
  Report Type: 
  Country: None (occurrence: None)
  Receive Date: 20100217
  Receipt Date: 20100128
  Transmission Date: 20100710
  Serious: Yes (Hospitalization)
  Sender: FDA-Public Use
  Company Number: 2010AL000680

PATIENT
  Age: 6 Year
  Sex: Female

DRUGS (2)
  1. DIAZEPAM TAB [Suspect]
     Indication: GRAND MAL CONVULSION
     Dosage: 10 MG; RTL
     Route: 054
     Dates: start: 20091222, end: 20091222
  2. ORFIRIL [Concomitant]

REACTIONS (1)
  - URTICARIA [None]
